FAERS Safety Report 15249773 (Version 2)
Quarter: 2018Q3

REPORT INFORMATION
  Report Type: Spontaneous
  Country: FR (occurrence: FR)
  Receive Date: 20180807
  Receipt Date: 20180911
  Transmission Date: 20181010
  Serious: Yes (Other)
  Sender: FDA-Public Use
  Company Number: FR-SA-2018SA204896

PATIENT
  Age: 76 Year
  Sex: Male
  Weight: 93 kg

DRUGS (20)
  1. XATRAL [Suspect]
     Active Substance: ALFUZOSIN
     Indication: DYSURIA
     Dosage: 10 MG, QD
     Route: 048
     Dates: start: 20180405
  2. PANTOPRAZOLE SODIUM. [Suspect]
     Active Substance: PANTOPRAZOLE SODIUM
     Dosage: 20 MG, QD
     Route: 048
     Dates: start: 20180406, end: 20180515
  3. BENAZEPRIL [Concomitant]
     Active Substance: BENAZEPRIL HYDROCHLORIDE
     Route: 048
  4. ELIQUIS [Concomitant]
     Active Substance: APIXABAN
     Dates: end: 20180405
  5. LOVENOX [Suspect]
     Active Substance: ENOXAPARIN SODIUM
     Indication: THROMBOSIS PROPHYLAXIS
     Dosage: 1 DF, QD
     Route: 058
     Dates: start: 20180406
  6. ESOMEPRAZOLE [Concomitant]
     Active Substance: ESOMEPRAZOLE
     Dates: end: 20180405
  7. PHLOROGLUCINOL ARROW [Concomitant]
     Active Substance: PHLOROGLUCINOL
  8. SIMVASTATINE ARROW [Concomitant]
     Active Substance: SIMVASTATIN
  9. FUNGIZONE [Suspect]
     Active Substance: AMPHOTERICIN B
     Indication: PRODUCT USED FOR UNKNOWN INDICATION
     Dosage: 3 DF, QD
     Route: 048
     Dates: start: 20180410, end: 20180510
  10. ELUDRILPERIO [Concomitant]
     Active Substance: CHLORHEXIDINE GLUCONATE
  11. AMLODIPINE BESILATE [Suspect]
     Active Substance: AMLODIPINE BESYLATE
     Indication: HYPERTENSION
     Dosage: 1 DF, QD
     Route: 048
     Dates: start: 20180406
  12. PRIMPERAN [Concomitant]
     Active Substance: METOCLOPRAMIDE HYDROCHLORIDE
  13. URAPIDIL MYLAN [Concomitant]
     Active Substance: URAPIDIL
  14. AVODART [Concomitant]
     Active Substance: DUTASTERIDE
     Dosage: UNK
     Dates: end: 20180405
  15. TAMSULOSINE [TAMSULOSIN] [Concomitant]
     Dates: end: 20180405
  16. SMECTA [DIOSMECTITE] [Concomitant]
  17. PARACETAMOL [Concomitant]
     Active Substance: ACETAMINOPHEN
  18. ESIDREX [Suspect]
     Active Substance: HYDROCHLOROTHIAZIDE
     Indication: HYPERTENSION
     Dosage: 12.5 MG, QD
     Route: 048
     Dates: start: 20180401, end: 20180501
  19. ALLOPURINOL. [Concomitant]
     Active Substance: ALLOPURINOL
     Dates: end: 20180405
  20. AMOXICILLINE/ACIDE CLAVULANIQ. SANDOZ [Concomitant]
     Active Substance: AMOXICILLIN\CLAVULANIC ACID
     Indication: INCREASED BRONCHIAL SECRETION
     Route: 048
     Dates: start: 20180310, end: 20180317

REACTIONS (1)
  - Hypokalaemia [Recovering/Resolving]

NARRATIVE: CASE EVENT DATE: 20180409
